FAERS Safety Report 4914349-7 (Version None)
Quarter: 2006Q1

REPORT INFORMATION
  Report Type: 
  Country: None (occurrence: None)
  Receive Date: 20060213
  Receipt Date: 20060201
  Transmission Date: 20060701
  Serious: Yes (Death)
  Sender: FDA-Public Use
  Company Number: 2005-US-01426

PATIENT
  Age: 44 Year
  Sex: Male
  Weight: 159.4847 kg

DRUGS (8)
  1. CLOZAPINE [Suspect]
     Dosage: 500 MG, QD, ORAL
     Route: 048
     Dates: start: 20000701, end: 20051101
  2. SERTRALINE HYDROCHLORIDE [Concomitant]
  3. ARIPIPRAZOLE [Concomitant]
  4. LEVOTHYROXINE SODUIM [Concomitant]
  5. FENOFIBRATE [Concomitant]
  6. METOCLOPRAMIDE [Concomitant]
  7. OMEPRAZOLE [Concomitant]
  8. LEVOTHYROXINE SODIUM [Concomitant]

REACTIONS (1)
  - STAPHYLOCOCCAL INFECTION [None]
